FAERS Safety Report 5621285-X (Version None)
Quarter: 2008Q1

REPORT INFORMATION
  Report Type: 
  Country: None (occurrence: None)
  Receive Date: 20080211
  Receipt Date: 20080131
  Transmission Date: 20080703
  Serious: Yes (Other)
  Sender: FDA-Public Use
  Company Number: US-JNJFOC-20080200304

PATIENT
  Age: 22 Year
  Sex: Female

DRUGS (1)
  1. ORTHO EVRA [Suspect]
     Indication: MENORRHAGIA
     Route: 062
     Dates: start: 20071201, end: 20080101

REACTIONS (3)
  - OFF LABEL USE [None]
  - VAGINAL HAEMORRHAGE [None]
  - WITHDRAWAL BLEED [None]
